FAERS Safety Report 11220247 (Version 1)
Quarter: 2015Q2

REPORT INFORMATION
  Report Type: Report from Study
  Country: US (occurrence: US)
  Receive Date: 20150625
  Receipt Date: 20150625
  Transmission Date: 20150821
  Serious: No
  Sender: FDA-Public Use
  Company Number: US-EXELIXIS-CABO-15005299

PATIENT
  Sex: Female

DRUGS (2)
  1. CABOZANTINIB [Suspect]
     Active Substance: CABOZANTINIB
     Dosage: 40 MG QD
     Route: 048
     Dates: start: 201504
  2. CABOZANTINIB [Suspect]
     Active Substance: CABOZANTINIB
     Indication: THYROID CANCER
     Dosage: 60 MG, QD
     Route: 048
     Dates: start: 201503, end: 201504

REACTIONS (4)
  - Diarrhoea [Unknown]
  - Insomnia [Recovered/Resolved]
  - Pain [Unknown]
  - Abdominal pain upper [Unknown]
